FAERS Safety Report 6349657-9 (Version None)
Quarter: 2009Q3

REPORT INFORMATION
  Report Type: 
  Country: None (occurrence: None)
  Receive Date: 20090911
  Receipt Date: 20090901
  Transmission Date: 20100115
  Serious: Yes (Other)
  Sender: FDA-Public Use
  Company Number: PHHY2009NO37283

PATIENT
  Age: 53 Year
  Sex: Female

DRUGS (3)
  1. LESCOL [Suspect]
  2. EZETROL [Suspect]
  3. SIMVASTATIN [Suspect]

REACTIONS (2)
  - MOTOR DYSFUNCTION [None]
  - PARAESTHESIA [None]
